FAERS Safety Report 26077154 (Version 1)
Quarter: 2025Q4

REPORT INFORMATION
  Report Type: Spontaneous
  Country: US (occurrence: US)
  Receive Date: 20251121
  Receipt Date: 20251121
  Transmission Date: 20260118
  Serious: Yes (Other)
  Sender: BRISTOL-MYERS SQUIBB COMPANY
  Company Number: US-BRISTOL-MYERS SQUIBB COMPANY-2025-156326

PATIENT
  Age: 85 Year
  Sex: Female

DRUGS (4)
  1. NIVOLUMAB [Suspect]
     Active Substance: NIVOLUMAB
     Indication: Malignant melanoma of sites other than skin
     Dates: start: 201901, end: 201901
  2. NIVOLUMAB [Suspect]
     Active Substance: NIVOLUMAB
     Dates: start: 202003, end: 202110
  3. TALIMOGENE LAHERPAREPVEC [Concomitant]
     Active Substance: TALIMOGENE LAHERPAREPVEC
     Indication: Metastatic malignant melanoma
     Dosage: 10^8 PFU
     Route: 026
     Dates: end: 202209
  4. TALIMOGENE LAHERPAREPVEC [Concomitant]
     Active Substance: TALIMOGENE LAHERPAREPVEC
     Dosage: 1 ML OF 10^6 PLAQUE-FORMING UNITS
     Route: 026
     Dates: start: 202110

REACTIONS (1)
  - Autoimmune hepatitis [Recovered/Resolved]

NARRATIVE: CASE EVENT DATE: 20190101
